FAERS Safety Report 17151535 (Version 1)
Quarter: 2019Q4

REPORT INFORMATION
  Report Type: Spontaneous
  Country: US (occurrence: US)
  Receive Date: 20191212
  Receipt Date: 20191212
  Transmission Date: 20200122
  Serious: Yes (Hospitalization, Other)
  Sender: FDA-Public Use
  Company Number: None

PATIENT
  Age: 71 Year
  Sex: Male
  Weight: 92.25 kg

DRUGS (6)
  1. NASAL DECONGESTANT INHALER [Suspect]
     Active Substance: LEVMETAMFETAMINE
     Route: 055
  2. ZOLOFT [Concomitant]
     Active Substance: SERTRALINE HYDROCHLORIDE
  3. PRESCRIPTION D3 [Concomitant]
  4. ALLOPURINAL [Concomitant]
     Active Substance: ALLOPURINOL
  5. ATORVASTATIN [Concomitant]
     Active Substance: ATORVASTATIN
  6. VITAMIN B12 [Concomitant]
     Active Substance: CYANOCOBALAMIN

REACTIONS (5)
  - Altered state of consciousness [None]
  - Vertigo [None]
  - Visual impairment [None]
  - Vomiting [None]
  - Transient global amnesia [None]

NARRATIVE: CASE EVENT DATE: 20191106
